FAERS Safety Report 9194110 (Version 2)
Quarter: 2013Q3

REPORT INFORMATION
  Report Type: Report from Study
  Country: BR (occurrence: BR)
  Receive Date: 20130327
  Receipt Date: 20130723
  Transmission Date: 20140515
  Serious: Yes (Other)
  Sender: FDA-Public Use
  Company Number: BR-ABBOTT-13P-020-1067517-00

PATIENT
  Age: 58 Year
  Sex: Female
  Weight: 71 kg

DRUGS (1)
  1. HUMIRA [Suspect]
     Indication: RHEUMATOID ARTHRITIS
     Route: 058

REACTIONS (6)
  - Foot fracture [Recovering/Resolving]
  - Ankle fracture [Recovering/Resolving]
  - Lower limb fracture [Recovering/Resolving]
  - Gait disturbance [Unknown]
  - Pain in extremity [Unknown]
  - Local swelling [Unknown]
